FAERS Safety Report 7639475-3 (Version None)
Quarter: 2011Q3

REPORT INFORMATION
  Report Type: 
  Country: None (occurrence: None)
  Receive Date: 20110722
  Receipt Date: 20110706
  Transmission Date: 20111222
  Serious: Yes (Hospitalization, Other)
  Sender: FDA-Public Use
  Company Number: 2011MA008431

PATIENT
  Age: 55 Year
  Sex: Female

DRUGS (2)
  1. RANITIDINE [Suspect]
     Indication: VOMITING
     Dosage: 50 MG;BID;IV
     Route: 042
  2. ROXITHROMYCIN (ROXITHROMYCIN) [Suspect]
     Indication: PUSTULAR PSORIASIS
     Dosage: 150 MG;BID

REACTIONS (2)
  - THROMBOCYTOPENIA [None]
  - WHITE BLOOD CELL COUNT DECREASED [None]
